FAERS Safety Report 15196619 (Version 2)
Quarter: 2018Q3

REPORT INFORMATION
  Report Type: Spontaneous
  Country: US (occurrence: US)
  Receive Date: 20180725
  Receipt Date: 20180725
  Transmission Date: 20181010
  Serious: Yes (Other)
  Sender: FDA-Public Use
  Company Number: US-BAUSCH-BL-2018-019790

PATIENT
  Age: 72 Year
  Sex: Female
  Weight: 68.1 kg

DRUGS (7)
  1. VSL 3 [Concomitant]
     Active Substance: PROBIOTICS NOS
     Indication: PRODUCT USED FOR UNKNOWN INDICATION
     Dosage: AS NEEDED
     Route: 048
  2. UCERIS [Suspect]
     Active Substance: BUDESONIDE
     Indication: COLITIS ULCERATIVE
     Dosage: DOSE: ONE APPLICATION; USED FOR THREE OR FOUR DAYS
     Route: 054
     Dates: start: 20180710, end: 201807
  3. TURMERIC [Concomitant]
     Active Substance: HERBALS\TURMERIC
     Indication: PRODUCT USED FOR UNKNOWN INDICATION
     Route: 048
  4. MULTIVITAMIN [Concomitant]
     Active Substance: VITAMINS
     Indication: PRODUCT USED FOR UNKNOWN INDICATION
     Route: 048
  5. UCERIS [Suspect]
     Active Substance: BUDESONIDE
     Dosage: NEW CANISTER: DOSE: ONE APPLICATION; DISCONTINUED A COUPLE OF DAYS AGO FROM THIS REPORT
     Route: 054
     Dates: start: 201807, end: 201807
  6. CANASA [Concomitant]
     Active Substance: MESALAMINE
     Indication: PRODUCT USED FOR UNKNOWN INDICATION
     Route: 054
  7. CALCIUM [Concomitant]
     Active Substance: CALCIUM
     Indication: PRODUCT USED FOR UNKNOWN INDICATION
     Route: 048

REACTIONS (2)
  - Colitis ulcerative [Recovering/Resolving]
  - Product container issue [Recovered/Resolved]

NARRATIVE: CASE EVENT DATE: 201807
